FAERS Safety Report 9519460 (Version 1)
Quarter: 2013Q1

REPORT INFORMATION
  Report Type: Spontaneous
  Country: US (occurrence: None)
  Receive Date: 20130305
  Receipt Date: 20130305
  Transmission Date: 20140127
  Serious: Yes (Hospitalization)
  Sender: FDA-Public Use
  Company Number: 163-21880-12020496

PATIENT
  Age: 82 Year
  Sex: Female
  Weight: 65.77 kg

DRUGS (20)
  1. REVLIMID (LENALIDOMIDE) (25 MILLIGRAM, CAPSULES) [Suspect]
     Indication: PLASMA CELL MYELOMA
     Dosage: 25 MG, 1 IN 1 D, PO
     Route: 048
     Dates: start: 20100819
  2. ZOLOFT (SERTRALINE HYDROCHLORIDE) (UNKNOWN) [Concomitant]
  3. TRAMADOL (TRAMADOL) (UNKNOWN) [Concomitant]
  4. PREVACID (LANSOPRAZOLE) (UNKNOWN) [Concomitant]
  5. OXYBUTYNIN (OXYBUTYNIN) (UNKNOWN) [Concomitant]
  6. NITROPUR MAC (NITROFURANTOIN) (UNKNOWN) [Concomitant]
  7. MVI (MVI) (UNKNOWN) [Concomitant]
  8. METOPROLOL (METOPROLOL) (UNKNOWN) [Concomitant]
  9. LEVOTHYROXINE (LEVOTHYROXINE) (UNKNOWN) [Concomitant]
  10. LASIX (FUROSEMIDE) (UNKNOWN) [Concomitant]
  11. KLOR-CON (POTASSIUM CHLORIDE) (UNKNOWN) [Concomitant]
  12. GEMFIBROZIL (GEMFIBROZIL) (UNKNOWN) [Concomitant]
  13. GABAPENTIN (GABAPENTIN) (UNKNOWN) (GABAPENTIN) [Concomitant]
  14. FORTEO (TERIPARATIDE) (UNKNOWN) [Concomitant]
  15. ENALAPRIL (ENALAPRIL) (UNKNOWN) [Concomitant]
  16. COLACE (DOCUSATE SODIUM) (UNKNOWN) [Concomitant]
  17. CALCIUM (CALCIUM) (UNKNOWN) [Concomitant]
  18. ATIVAN (LORAZEPAM) (UNKNOWN) [Concomitant]
  19. ASPIRIN (ACETYLSALICYLIC ACID) (UNKNOWN) (ACETYLSALICYLIC ACID) [Concomitant]
  20. ANASTROZOLE (ANASTROZOLE) (UNKNOWN) [Concomitant]

REACTIONS (2)
  - Atrial fibrillation [None]
  - Cerebrovascular accident [None]
